FAERS Safety Report 6019449-9 (Version None)
Quarter: 2008Q4

REPORT INFORMATION
  Report Type: 
  Country: None (occurrence: None)
  Receive Date: 20081224
  Receipt Date: 20081222
  Transmission Date: 20090506
  Serious: Yes (Other)
  Sender: FDA-Public Use
  Company Number: US-ELI_LILLY_AND_COMPANY-US200811005804

PATIENT
  Age: 16 Year
  Sex: Female
  Weight: 52.608 kg

DRUGS (3)
  1. PROZAC [Suspect]
     Indication: ANOREXIA
     Dosage: 60 MG, DAILY (1/D)
     Route: 065
     Dates: start: 20080616
  2. ZYPREXA [Concomitant]
     Indication: BIPOLAR DISORDER
     Dosage: UNK, UNKNOWN
     Route: 065
  3. NITREX [Concomitant]
     Dosage: 150 MG, 2/D

REACTIONS (4)
  - AMENORRHOEA [None]
  - ANAEMIA [None]
  - BONE MARROW FAILURE [None]
  - WEIGHT DECREASED [None]
